FAERS Safety Report 5746385-5 (Version None)
Quarter: 2008Q2

REPORT INFORMATION
  Report Type: 
  Country: None (occurrence: None)
  Receive Date: 20080522
  Receipt Date: 20080513
  Transmission Date: 20081010
  Serious: Yes (Death)
  Sender: FDA-Public Use
  Company Number: US-WATSON-2008-03023

PATIENT
  Age: 91 Year
  Sex: Female

DRUGS (3)
  1. BACLOFEN (WATSON LABORATORIES) [Suspect]
     Indication: MUSCLE SPASMS
     Dosage: 1TABLET, BID
     Route: 048
     Dates: start: 20080220, end: 20080229
  2. ANTIHYPERTENSIVES [Concomitant]
     Indication: BLOOD PRESSURE
     Dosage: UNK
     Route: 048
     Dates: end: 20080201
  3. EFFEXOR [Concomitant]
     Indication: DEPRESSION
     Dosage: UNK
     Route: 048
     Dates: end: 20080201

REACTIONS (2)
  - DEATH [None]
  - SEDATION [None]
